FAERS Safety Report 10097342 (Version 1)
Quarter: 2014Q2

REPORT INFORMATION
  Report Type: Report from Study
  Country: US (occurrence: US)
  Receive Date: 20140423
  Receipt Date: 20140423
  Transmission Date: 20141212
  Serious: Yes (Hospitalization)
  Sender: FDA-Public Use
  Company Number: US-ROCHE-1383559

PATIENT
  Age: 69 Year
  Sex: Female
  Weight: 45.13 kg

DRUGS (7)
  1. PEG-INTERFERON ALFA 2A [Suspect]
     Indication: POLYCYTHAEMIA VERA
     Dosage: LAST DOSE PRIOR TO SAE: 27/JAN/2014
     Route: 058
     Dates: start: 20120827, end: 20140127
  2. ASCORBIC ACID [Concomitant]
     Route: 048
  3. CHOLECALCIFEROL [Concomitant]
     Route: 048
  4. ENOXAPARIN SODIUM [Concomitant]
     Dosage: 80 MG/0.8 ML
     Route: 058
  5. LOSARTAN POTASSIUM [Concomitant]
     Dosage: 50 - 12.5 MG
     Route: 048
  6. OMEPRAZOLE [Concomitant]
     Dosage: AS NEEDED
     Route: 048
  7. SENNOSIDES [Concomitant]
     Dosage: 2 TABLETS EVERY NIGHT.
     Route: 065

REACTIONS (1)
  - Jugular vein thrombosis [Unknown]
